FAERS Safety Report 9612030 (Version 1)
Quarter: 2013Q4

REPORT INFORMATION
  Report Type: Spontaneous
  Country: BR (occurrence: BR)
  Receive Date: 20131010
  Receipt Date: 20131010
  Transmission Date: 20140711
  Serious: Yes (Hospitalization)
  Sender: FDA-Public Use
  Company Number: BR-BAYER-2013-119147

PATIENT
  Age: 41 Year
  Sex: Female
  Weight: 64.85 kg

DRUGS (1)
  1. QLAIRA [Suspect]
     Indication: CONTRACEPTION
     Dosage: 1 DF, QD
     Route: 048
     Dates: start: 201204, end: 20130930

REACTIONS (5)
  - Abdominal pain [Recovering/Resolving]
  - Appendix disorder [Recovering/Resolving]
  - Hypotension [Recovered/Resolved]
  - Vomiting [Recovered/Resolved]
  - Metrorrhagia [Not Recovered/Not Resolved]
